FAERS Safety Report 8532053 (Version 2)
Quarter: 2013Q2

REPORT INFORMATION
  Report Type: Spontaneous
  Country: US (occurrence: US)
  Receive Date: 20120426
  Receipt Date: 20130507
  Transmission Date: 20140414
  Serious: Yes (Other)
  Sender: FDA-Public Use
  Company Number: US-ROCHE-1060752

PATIENT
  Age: 64 Year
  Sex: Male
  Weight: 79.45 kg

DRUGS (3)
  1. ACCUTANE [Suspect]
     Indication: ROSACEA
     Route: 048
     Dates: start: 198901, end: 199003
  2. ACCUTANE [Suspect]
     Indication: ROSACEA
  3. CLARAVIS [Suspect]
     Indication: ACNE
     Route: 065
     Dates: start: 20090629, end: 20120322

REACTIONS (5)
  - Colitis ulcerative [Unknown]
  - Crohn^s disease [Unknown]
  - Inflammatory bowel disease [Unknown]
  - Irritable bowel syndrome [Unknown]
  - Anxiety [Unknown]
